FAERS Safety Report 21541846 (Version 1)
Quarter: 2022Q4

REPORT INFORMATION
  Report Type: Spontaneous
  Country: CN (occurrence: CN)
  Receive Date: 20221102
  Receipt Date: 20221102
  Transmission Date: 20230113
  Serious: Yes (Other)
  Sender: FDA-Public Use
  Company Number: None

PATIENT
  Age: 68 Year
  Sex: Female
  Weight: 56 kg

DRUGS (7)
  1. CYCLOPHOSPHAMIDE [Suspect]
     Active Substance: CYCLOPHOSPHAMIDE
     Indication: Breast cancer female
     Dosage: 730 MG, QD, DILUTED WITH 40 ML OF SODIUM CHLORIDE, FOURTH CHEMOTHERAPY
     Route: 042
     Dates: start: 20220914, end: 20220914
  2. CYCLOPHOSPHAMIDE [Suspect]
     Active Substance: CYCLOPHOSPHAMIDE
     Indication: Chemotherapy
  3. SODIUM CHLORIDE [Suspect]
     Active Substance: SODIUM CHLORIDE
     Indication: Medication dilution
     Dosage: 40 ML, QD, USED TO DILUTE 730 MG CYCLOPHOSPHAMIDE, FOURTH CHEMOTHERAPY
     Route: 042
     Dates: start: 20220914, end: 20220914
  4. SODIUM CHLORIDE [Suspect]
     Active Substance: SODIUM CHLORIDE
     Dosage: 100 ML, QD, USED TO DILUTE 117 MG EPIRUBICIN HYDROCHLORIDE (AIDASHENG), FOURTH CHEMOTHERAPY
     Route: 041
     Dates: start: 20220914, end: 20220914
  5. EPIRUBICIN HYDROCHLORIDE [Suspect]
     Active Substance: EPIRUBICIN HYDROCHLORIDE
     Indication: Breast cancer female
     Dosage: 117 MG, QD, DILUTED WITH 100 ML OF SODIUM CHLORIDE, FOURTH CHEMOTHERAPY
     Route: 041
     Dates: start: 20220914, end: 20220914
  6. EPIRUBICIN HYDROCHLORIDE [Suspect]
     Active Substance: EPIRUBICIN HYDROCHLORIDE
     Indication: Chemotherapy
  7. AI DUO [Concomitant]
     Indication: Product used for unknown indication
     Dosage: 6 MG, ON THIRD DAY
     Route: 058

REACTIONS (2)
  - White blood cell count decreased [Recovered/Resolved]
  - Agranulocytosis [Recovered/Resolved]

NARRATIVE: CASE EVENT DATE: 20220921
